FAERS Safety Report 10013372 (Version 2)
Quarter: 2014Q2

REPORT INFORMATION
  Report Type: Spontaneous
  Country: US (occurrence: US)
  Receive Date: 20140314
  Receipt Date: 20140422
  Transmission Date: 20141212
  Serious: No
  Sender: FDA-Public Use
  Company Number: US-B.I. PHARMACEUTICALS,INC./RIDGEFIELD-2014-BI-10139BP

PATIENT
  Age: 65 Year
  Sex: Female

DRUGS (5)
  1. ATROVENT INHALATION SOLUTION [Suspect]
     Indication: ASTHMA
     Dosage: 136 MCG
     Route: 055
     Dates: start: 2004
  2. ALBUTEROL [Concomitant]
     Indication: SEASONAL ALLERGY
     Dosage: FORMULATION: INHALATION SOLUTION
     Route: 055
  3. VASOTEC [Concomitant]
     Indication: HYPERTENSION
     Dosage: 10 MG
     Route: 048
     Dates: start: 2008
  4. LOPRESSOR [Concomitant]
     Indication: HYPERTENSION
     Dosage: 50 MG
     Route: 048
     Dates: start: 2008
  5. SYNTHROID [Concomitant]
     Indication: HYPOTHYROIDISM
     Dosage: 125 MG
     Route: 048
     Dates: start: 1974

REACTIONS (3)
  - Pulmonary congestion [Recovered/Resolved]
  - Product quality issue [Unknown]
  - Off label use [Unknown]
